FAERS Safety Report 24820082 (Version 1)
Quarter: 2025Q1

REPORT INFORMATION
  Report Type: Spontaneous
  Country: US (occurrence: US)
  Receive Date: 20250108
  Receipt Date: 20250108
  Transmission Date: 20250409
  Serious: Yes (Other)
  Sender: AMGEN
  Company Number: US-AMGEN-USASP2024256788

PATIENT
  Sex: Female

DRUGS (37)
  1. REPATHA [Suspect]
     Active Substance: EVOLOCUMAB
     Indication: Product used for unknown indication
     Route: 065
     Dates: start: 20240902
  2. TEZSPIRE [Suspect]
     Active Substance: TEZEPELUMAB-EKKO
     Indication: Asthma
     Dosage: 210 MILLIGRAM, QD
     Route: 065
     Dates: start: 20241230, end: 20241230
  3. TEZSPIRE [Suspect]
     Active Substance: TEZEPELUMAB-EKKO
     Dosage: 110 MILLIGRAM, Q4WK
     Route: 065
     Dates: start: 20241231
  4. QULIPTA [Concomitant]
     Active Substance: ATOGEPANT
     Route: 065
  5. BREZTRI [Concomitant]
     Active Substance: BUDESONIDE\FORMOTEROL\GLYCOPYRROLATE
     Dosage: 160 MICROGRAM, BID (INHALE 160 MCG IN THE MORNING AND 160 MCG BEFORE BEDTIME. 2 PUFFS) (160-9-4.8 MC
  6. COREG [Concomitant]
     Active Substance: CARVEDILOL
     Dosage: 12.5 MILLIGRAM, BID (WITH MEAL)
     Route: 048
     Dates: start: 20240515, end: 20241230
  7. VAGIFEM [Concomitant]
     Active Substance: ESTRADIOL
     Route: 065
     Dates: start: 20241204
  8. GEMTESA [Concomitant]
     Active Substance: VIBEGRON
     Route: 065
     Dates: start: 20241202
  9. ATROVENT [Concomitant]
     Active Substance: IPRATROPIUM BROMIDE
     Dosage: 0.03 PERCENT, TID (2 SPARY NASAL)
     Route: 045
     Dates: start: 20240611
  10. LINZESS [Concomitant]
     Active Substance: LINACLOTIDE
     Route: 065
     Dates: start: 20241220
  11. SINGULAIR [Concomitant]
     Active Substance: MONTELUKAST SODIUM
     Route: 065
     Dates: start: 20240910
  12. NEXLIZET [Concomitant]
     Active Substance: BEMPEDOIC ACID\EZETIMIBE
     Dosage: 190 MILLIGRAM, QD (180-10 MG TABLET)
     Route: 048
     Dates: start: 20240718
  13. BOTOX [Concomitant]
     Active Substance: ONABOTULINUMTOXINA
     Dosage: 200 UNIT, Q3MO
     Route: 030
     Dates: start: 20200315
  14. OZEMPIC [Concomitant]
     Active Substance: SEMAGLUTIDE
     Route: 065
     Dates: start: 20241014
  15. TOPAMAX [Concomitant]
     Active Substance: TOPIRAMATE
     Dosage: 800 MILLIGRAM, QD (4 TABLETS ONE TIME EACH DAY)
     Route: 048
     Dates: start: 20230207
  16. UBRELVY [Concomitant]
     Active Substance: UBROGEPANT
     Dosage: 100 MILLIGRAM, QD
     Route: 048
     Dates: start: 20230518
  17. ELAVIL [Concomitant]
     Active Substance: AMITRIPTYLINE HYDROCHLORIDE
     Route: 065
     Dates: start: 20240718
  18. REGLAN [Concomitant]
     Active Substance: METOCLOPRAMIDE HYDROCHLORIDE
     Route: 065
  19. SUPREP BOWEL PREP [Concomitant]
     Active Substance: MAGNESIUM SULFATE\POTASSIUM SULFATE\SODIUM SULFATE
     Route: 065
  20. NITROSTAT [Concomitant]
     Active Substance: NITROGLYCERIN
     Route: 060
  21. DUPIXENT [Concomitant]
     Active Substance: DUPILUMAB
     Dosage: 300 MILLIGRAM, Q2WK
     Route: 058
     Dates: start: 20241203
  22. DUPIXENT [Concomitant]
     Active Substance: DUPILUMAB
     Dosage: 300 MILLIGRAM, QD
     Route: 058
     Dates: start: 20241203
  23. DECADRON [Concomitant]
     Active Substance: DEXAMETHASONE
     Dosage: 10 MILLIGRAM, QD
     Route: 040
     Dates: start: 20241213
  24. SUBLIMAZE [Concomitant]
     Active Substance: FENTANYL CITRATE
     Dosage: 25 MICROGRAM, QD
     Route: 040
     Dates: start: 20241213
  25. ZOFRAN [Concomitant]
     Active Substance: ONDANSETRON HYDROCHLORIDE
     Dosage: 4 MILLIGRAM, QD
     Route: 040
     Dates: start: 20241213
  26. SODIUM CHLORIDE [Concomitant]
     Active Substance: SODIUM CHLORIDE
     Dosage: 0.9 PERCENT, QD (1000 ML)
     Route: 040
     Dates: start: 20241213
  27. KEFLEX [Concomitant]
     Active Substance: CEPHALEXIN
     Route: 065
     Dates: start: 20240913, end: 20241217
  28. CETIRIZINE HCL [Concomitant]
     Active Substance: CETIRIZINE HYDROCHLORIDE
     Route: 065
     Dates: end: 20241217
  29. CICLOPIROX [Concomitant]
     Active Substance: CICLOPIROX
     Route: 065
     Dates: end: 20241217
  30. IMDUR [Concomitant]
     Active Substance: ISOSORBIDE MONONITRATE
     Route: 065
     Dates: start: 20240618, end: 20241217
  31. MOBIC [Concomitant]
     Active Substance: MELOXICAM
     Dosage: 15 MILLIGRAM, QD (FOR 7 DAYS)
     Route: 048
     Dates: start: 20240919, end: 20241217
  32. MEDROL [Concomitant]
     Active Substance: METHYLPREDNISOLONE
     Route: 065
     Dates: start: 20240919, end: 20241217
  33. RELAFEN [Concomitant]
     Active Substance: NABUMETONE
     Route: 065
     Dates: end: 20241217
  34. PERCOCET [Concomitant]
     Active Substance: ACETAMINOPHEN\OXYCODONE HYDROCHLORIDE
     Dosage: 330 MILLIGRAM, Q6H (5-325 MG) (TAKE 1 TO 2 TABLETS BY MOUTH EVERY 6 HOURS AS NEEDEDE FOR PAIN FOR 2
     Route: 048
     Dates: start: 20240919, end: 20241217
  35. RANEXA [Concomitant]
     Active Substance: RANOLAZINE
     Route: 065
     Dates: start: 20240618, end: 20241217
  36. ZANAFLEX [Concomitant]
     Active Substance: TIZANIDINE HYDROCHLORIDE
     Route: 065
     Dates: start: 20240528, end: 20241217
  37. ULTRAM [Concomitant]
     Active Substance: TRAMADOL HYDROCHLORIDE
     Route: 065
     Dates: start: 20240524, end: 20241217

REACTIONS (16)
  - Coronary artery aneurysm [Unknown]
  - Transient ischaemic attack [Unknown]
  - Myelopathy [Unknown]
  - Polyneuropathy [Unknown]
  - Asthmatic crisis [Unknown]
  - Cervical radiculopathy [Unknown]
  - Migraine with aura [Unknown]
  - Spinal osteoarthritis [Unknown]
  - Dysphagia [Unknown]
  - Vitamin D deficiency [Unknown]
  - Generalised anxiety disorder [Unknown]
  - Thyroid mass [Unknown]
  - Chalazion [Unknown]
  - Iron deficiency anaemia [Unknown]
  - Obstructive sleep apnoea syndrome [Unknown]
  - Hyperglycaemia [Unknown]
